FAERS Safety Report 7041121-7 (Version None)
Quarter: 2010Q4

REPORT INFORMATION
  Report Type: 
  Country: None (occurrence: None)
  Receive Date: 20101013
  Receipt Date: 20070829
  Transmission Date: 20110411
  Serious: Yes (Other)
  Sender: FDA-Public Use
  Company Number: FR-CELGENEUS-056-C5013-07081902

PATIENT
  Age: 52 Year
  Sex: Male

DRUGS (1)
  1. CC-5013 [Suspect]
     Route: 048
     Dates: start: 20070530, end: 20070613

REACTIONS (2)
  - CYTOLYTIC HEPATITIS [None]
  - RASH [None]
